FAERS Safety Report 13170607 (Version 1)
Quarter: 2017Q1

REPORT INFORMATION
  Report Type: Report from Study
  Country: None (occurrence: BR)
  Receive Date: 20170131
  Receipt Date: 20170131
  Transmission Date: 20170428
  Serious: Yes (Other)
  Sender: FDA-Public Use
  Company Number: BR-ABBVIE-17P-020-1859080-00

PATIENT
  Sex: Female

DRUGS (1)
  1. SYNTHROID [Suspect]
     Active Substance: LEVOTHYROXINE SODIUM
     Indication: HYPOTHYROIDISM
     Dosage: DAILY DOSE: ^1^; FASTING
     Route: 048
     Dates: start: 2012

REACTIONS (6)
  - Osteoporosis [Not Recovered/Not Resolved]
  - Sinus polyp [Not Recovered/Not Resolved]
  - Vocal cord disorder [Not Recovered/Not Resolved]
  - Nasal congestion [Unknown]
  - Aphonia [Unknown]
  - Rhinitis [Not Recovered/Not Resolved]
